FAERS Safety Report 6077965-8 (Version None)
Quarter: 2009Q1

REPORT INFORMATION
  Report Type: 
  Country: None (occurrence: None)
  Receive Date: 20090213
  Receipt Date: 20090205
  Transmission Date: 20090719
  Serious: Yes (Other)
  Sender: FDA-Public Use
  Company Number: NL-TEVA-185146ISR

PATIENT
  Sex: Female
  Weight: 65 kg

DRUGS (3)
  1. METHOTREXATE [Suspect]
     Indication: RHEUMATOID ARTHRITIS
     Route: 058
     Dates: start: 20000518, end: 20081221
  2. INFLIXIMAB [Suspect]
     Indication: RHEUMATOID ARTHRITIS
     Route: 042
     Dates: start: 20010806, end: 20081001
  3. FOLIUMZUR ACTAVIS (FOLIC ACID) [Concomitant]
     Dates: start: 20000518

REACTIONS (1)
  - LUNG NEOPLASM MALIGNANT [None]
